FAERS Safety Report 12947713 (Version 12)
Quarter: 2017Q3

REPORT INFORMATION
  Report Type: Report from Study
  Country: AU (occurrence: AU)
  Receive Date: 20161116
  Receipt Date: 20170711
  Transmission Date: 20171127
  Serious: Yes (Death, Hospitalization, Other)
  Sender: FDA-Public Use
  Company Number: AU-JNJFOC-20160619117

PATIENT
  Age: 67 Year
  Sex: Male

DRUGS (2)
  1. STELARA [Suspect]
     Active Substance: USTEKINUMAB
     Indication: PSORIASIS
     Route: 058
     Dates: start: 20160620
  2. STELARA [Suspect]
     Active Substance: USTEKINUMAB
     Indication: PSORIASIS
     Route: 058

REACTIONS (18)
  - Alcohol withdrawal syndrome [Unknown]
  - Weight decreased [Unknown]
  - Skin ulcer [Unknown]
  - Alopecia [Not Recovered/Not Resolved]
  - Skin infection [Unknown]
  - Malaise [Unknown]
  - Balance disorder [Not Recovered/Not Resolved]
  - Staphylococcal infection [Unknown]
  - Alcoholic liver disease [Not Recovered/Not Resolved]
  - Renal failure [Unknown]
  - Confusional state [Not Recovered/Not Resolved]
  - Injection site bruising [Recovered/Resolved]
  - Arthralgia [Unknown]
  - Cardiac failure [Fatal]
  - Sepsis [Not Recovered/Not Resolved]
  - Cellulitis [Not Recovered/Not Resolved]
  - Anticoagulation drug level abnormal [Unknown]
  - Psoriasis [Not Recovered/Not Resolved]

NARRATIVE: CASE EVENT DATE: 20161020
